FAERS Safety Report 9107956 (Version 4)
Quarter: 2013Q2

REPORT INFORMATION
  Report Type: Spontaneous
  Country: US (occurrence: US)
  Receive Date: 20130221
  Receipt Date: 20130517
  Transmission Date: 20140414
  Serious: Yes (Other)
  Sender: FDA-Public Use
  Company Number: US-PFIZER INC-2013065140

PATIENT
  Age: 65 Year
  Sex: Female
  Weight: 62.59 kg

DRUGS (4)
  1. NEURONTIN [Suspect]
     Indication: DYSTONIA
     Dosage: 600 MG, 3X/DAY
     Route: 048
     Dates: start: 2010
  2. NEURONTIN [Suspect]
     Dosage: 600 MG, 2X/DAY
     Route: 048
     Dates: start: 2010
  3. KLONOPIN [Concomitant]
     Indication: DYSTONIA
     Dosage: UNK
  4. CRESTOR [Concomitant]
     Indication: BLOOD CHOLESTEROL INCREASED
     Dosage: UNK

REACTIONS (10)
  - Rotator cuff syndrome [Unknown]
  - Musculoskeletal pain [Unknown]
  - Arthritis [Unknown]
  - Muscular weakness [Unknown]
  - Carpal tunnel syndrome [Unknown]
  - Limb discomfort [Unknown]
  - Local swelling [Unknown]
  - Pain [Unknown]
  - Pain in extremity [Unknown]
  - Off label use [Not Recovered/Not Resolved]
